FAERS Safety Report 8898887 (Version 3)
Quarter: 2012Q4

REPORT INFORMATION
  Report Type: 
  Country: SI (occurrence: SI)
  Receive Date: 20121109
  Receipt Date: 20121218
  Transmission Date: 20130627
  Serious: Yes (Hospitalization, Other)
  Sender: FDA-Public Use
  Company Number: SI-PFIZER INC-2012279359

PATIENT
  Age: 67 Year
  Sex: Female
  Weight: 70 kg

DRUGS (2)
  1. SUTENT [Suspect]
     Indication: METASTATIC RENAL CELL CARCINOMA
     Dosage: 50 mg, daily for 4 weeks, then 2 weeks stopped
     Route: 048
     Dates: start: 20110405, end: 20110616
  2. SKOPRYL [Concomitant]
     Indication: HYPERTENSION
     Dosage: UNK
     Dates: start: 20110405

REACTIONS (9)
  - Thrombocytopenia [Recovered/Resolved]
  - Neutropenia [Recovered/Resolved]
  - Hyperbilirubinaemia [Recovered/Resolved]
  - Anaemia [Recovered/Resolved]
  - Fatigue [Recovered/Resolved]
  - Aspartate aminotransferase increased [Recovered/Resolved]
  - Alanine aminotransferase increased [Recovered/Resolved]
  - Epistaxis [Recovered/Resolved]
  - Gastrointestinal haemorrhage [Recovered/Resolved]
